FAERS Safety Report 4360195-5 (Version None)
Quarter: 2004Q2

REPORT INFORMATION
  Report Type: 
  Country: None (occurrence: None)
  Receive Date: 20040513
  Receipt Date: 20040503
  Transmission Date: 20050107
  Serious: Yes (Death, Hospitalization)
  Sender: FDA-Public Use
  Company Number: US-JNJFOC-20040501255

PATIENT
  Age: 62 Year
  Sex: Female
  Weight: 72.5755 kg

DRUGS (3)
  1. TOPAMAX [Suspect]
     Indication: AFFECTIVE DISORDER
     Dosage: 100 MG, 2 IN 1 DAY
     Dates: start: 20030401, end: 20040430
  2. SEROQUEL [Concomitant]
  3. PROZAC [Concomitant]

REACTIONS (2)
  - CORONARY ARTERY SURGERY [None]
  - PULMONARY EMBOLISM [None]
